FAERS Safety Report 9759607 (Version 1)
Quarter: 2013Q4

REPORT INFORMATION
  Report Type: Spontaneous
  Country: US (occurrence: US)
  Receive Date: 20131216
  Receipt Date: 20131216
  Transmission Date: 20140711
  Serious: Yes (Hospitalization)
  Sender: FDA-Public Use
  Company Number: US-GILEAD-2010-0028129

PATIENT
  Age: 21 Year
  Sex: Female
  Weight: 84.5 kg

DRUGS (8)
  1. LETAIRIS [Suspect]
     Indication: PULMONARY ARTERIAL HYPERTENSION
     Route: 048
     Dates: start: 20100210
  2. COUMADIN [Concomitant]
  3. LOVENOX [Concomitant]
  4. LORTAB [Concomitant]
  5. MOTRIN IB [Concomitant]
  6. HYDROXYUREA [Concomitant]
  7. FOLIC ACID [Concomitant]
  8. MULTIVITAMIN [Concomitant]

REACTIONS (1)
  - Dyspnoea [Unknown]
